FAERS Safety Report 24357526 (Version 1)
Quarter: 2024Q3

REPORT INFORMATION
  Report Type: Spontaneous
  Country: US (occurrence: None)
  Receive Date: 20240923
  Receipt Date: 20240923
  Transmission Date: 20241017
  Serious: Yes (Other)
  Sender: Public
  Company Number: None

PATIENT
  Age: 62 Year
  Sex: Female
  Weight: 54.4 kg

DRUGS (1)
  1. PRIVIGEN [Suspect]
     Active Substance: HUMAN IMMUNOGLOBULIN G
     Indication: Immunodeficiency common variable
     Dosage: 50 G GRAM(S) EVERY 4 WEEKS INTRAVENOUS?
     Route: 042
     Dates: start: 20240919, end: 20240919

REACTIONS (8)
  - Infusion related reaction [None]
  - Fatigue [None]
  - Pain in extremity [None]
  - Pain in extremity [None]
  - Myalgia [None]
  - Arthralgia [None]
  - Neuropathy peripheral [None]
  - Erythema [None]

NARRATIVE: CASE EVENT DATE: 20240921
